FAERS Safety Report 7677591-0 (Version None)
Quarter: 2011Q3

REPORT INFORMATION
  Report Type: 
  Country: None (occurrence: None)
  Receive Date: 20110811
  Receipt Date: 20110811
  Transmission Date: 20111222
  Serious: No
  Sender: FDA-Public Use
  Company Number: None

PATIENT
  Sex: Male
  Weight: 83.914 kg

DRUGS (3)
  1. FENTANYL-100 [Suspect]
     Indication: MUSCULOSKELETAL PAIN
     Dosage: 1 PATCH
     Route: 062
     Dates: start: 20100303, end: 20100329
  2. FENTANYL-100 [Suspect]
     Indication: BACK PAIN
     Dosage: 1 PATCH
     Route: 062
     Dates: start: 20100303, end: 20100329
  3. APPLIANCE DEODORANT DROPS M-9 [Concomitant]
     Route: 061

REACTIONS (3)
  - DERMATITIS CONTACT [None]
  - ERYTHEMA [None]
  - PRODUCT SUBSTITUTION ISSUE [None]
